FAERS Safety Report 6765176-X (Version None)
Quarter: 2010Q2

REPORT INFORMATION
  Report Type: 
  Country: None (occurrence: None)
  Receive Date: 20100610
  Receipt Date: 20100610
  Transmission Date: 20101027
  Serious: Yes (Other)
  Sender: FDA-Public Use
  Company Number: None

PATIENT
  Age: 17 Year
  Sex: Female
  Weight: 77.1115 kg

DRUGS (2)
  1. ACCUTANE [Suspect]
     Indication: ACNE
     Dosage: 40 MG ONCE A DAY PO
     Route: 048
     Dates: start: 20030715, end: 20031204
  2. ACCUTANE [Suspect]
     Dosage: 60 MG ONCE A DAY PO
     Route: 048

REACTIONS (2)
  - ENDOMETRIOSIS [None]
  - HYSTERECTOMY [None]
